FAERS Safety Report 10638282 (Version 1)
Quarter: 2014Q4

REPORT INFORMATION
  Report Type: Spontaneous
  Country: None (occurrence: None)
  Receive Date: 20141204
  Receipt Date: 20141204
  Transmission Date: 20150529
  Serious: Yes (Other)
  Sender: FDA-Public Use
  Company Number: HA14-430-AE

PATIENT
  Age: 62 Year
  Sex: Male
  Weight: 90.72 kg

DRUGS (1)
  1. HYDROCODONE BITARTRATE AND IBUPROFEN [Suspect]
     Active Substance: HYDROCODONE BITARTRATE\IBUPROFEN
     Indication: PROCEDURAL PAIN
     Dosage: 1 TABLET TID, ORAL
     Route: 048
     Dates: start: 20141117, end: 20141121

REACTIONS (3)
  - Dizziness [None]
  - Somnolence [None]
  - Overdose [None]

NARRATIVE: CASE EVENT DATE: 20141117
